FAERS Safety Report 25892390 (Version 1)
Quarter: 2025Q4

REPORT INFORMATION
  Report Type: Spontaneous
  Country: EU (occurrence: EU)
  Receive Date: 20251007
  Receipt Date: 20251007
  Transmission Date: 20260117
  Serious: Yes (Other)
  Sender: MYLAN
  Company Number: EU-TEVA-VS-3374441

PATIENT
  Age: 32 Year
  Sex: Male

DRUGS (4)
  1. SUMATRIPTAN [Suspect]
     Active Substance: SUMATRIPTAN
     Indication: Migraine
     Dosage: UNK
  2. SUMATRIPTAN [Suspect]
     Active Substance: SUMATRIPTAN
     Dosage: UNK
     Route: 065
  3. SUMATRIPTAN [Suspect]
     Active Substance: SUMATRIPTAN
     Dosage: UNK
     Route: 065
  4. SUMATRIPTAN [Suspect]
     Active Substance: SUMATRIPTAN
     Dosage: UNK

REACTIONS (6)
  - Loss of personal independence in daily activities [Unknown]
  - Migraine [Unknown]
  - Hemiparaesthesia [Unknown]
  - Migraine with aura [Unknown]
  - Vomiting [Unknown]
  - Drug ineffective [Unknown]
